FAERS Safety Report 5342360-3 (Version None)
Quarter: 2007Q2

REPORT INFORMATION
  Report Type: 
  Country: None (occurrence: None)
  Receive Date: 20070601
  Receipt Date: 20070522
  Transmission Date: 20071010
  Serious: Yes (Hospitalization, Disabling)
  Sender: FDA-Public Use
  Company Number: US-BAUSCH-2007BL001227

PATIENT
  Age: 63 Year
  Sex: Female
  Weight: 56 kg

DRUGS (11)
  1. PREDNISOLONE SODIUM PHOSPHATE [Suspect]
     Dates: start: 20070116
  2. CIPROFLOXACIN [Suspect]
     Route: 048
     Dates: start: 20070219, end: 20070228
  3. ALENDRONIC ACID [Concomitant]
     Indication: OSTEOPOROSIS
     Route: 048
     Dates: start: 20040101
  4. CALCICHEW-D3 [Concomitant]
     Indication: OSTEOPOROSIS
     Route: 048
     Dates: start: 20040101
  5. CITALOPRAM HYDROBROMIDE [Concomitant]
     Indication: DEPRESSION
     Route: 048
     Dates: start: 20040101
  6. CODEINE PHOSPHATE AND ACETAMINOPHEN [Concomitant]
     Indication: OSTEOARTHRITIS
     Route: 048
     Dates: start: 20050101
  7. MECYSTEINE [Concomitant]
     Route: 048
     Dates: start: 20070201, end: 20070326
  8. RANITIDINE [Concomitant]
     Indication: GASTROOESOPHAGEAL REFLUX DISEASE
     Route: 048
     Dates: start: 20060101
  9. SALBUTAMOL [Concomitant]
     Route: 049
     Dates: start: 20020101
  10. SERETIDE ^ALLEN + HANBURYS LTD^ [Concomitant]
     Route: 049
     Dates: start: 20040101
  11. TIOTROPIUM BROMIDE [Concomitant]
     Route: 049
     Dates: start: 20050101

REACTIONS (2)
  - TENDON RUPTURE [None]
  - TENDONITIS [None]
